FAERS Safety Report 6427733-X (Version None)
Quarter: 2009Q4

REPORT INFORMATION
  Report Type: 
  Country: None (occurrence: None)
  Receive Date: 20091105
  Receipt Date: 20091028
  Transmission Date: 20100525
  Serious: Yes (Hospitalization, Other)
  Sender: FDA-Public Use
  Company Number: US-BIOGENIDEC-2009BI035075

PATIENT
  Age: 52 Year
  Sex: Female

DRUGS (1)
  1. AVONEX [Suspect]
     Indication: MULTIPLE SCLEROSIS
     Route: 030
     Dates: start: 20040621, end: 20090401

REACTIONS (5)
  - CONVULSION [None]
  - FALL [None]
  - LUNG NEOPLASM MALIGNANT [None]
  - MUSCULOSKELETAL STIFFNESS [None]
  - SPINAL FRACTURE [None]
